FAERS Safety Report 13423835 (Version 1)
Quarter: 2017Q2

REPORT INFORMATION
  Report Type: Spontaneous
  Country: JP (occurrence: JP)
  Receive Date: 20170410
  Receipt Date: 20170410
  Transmission Date: 20170830
  Serious: Yes (Death, Other)
  Sender: FDA-Public Use
  Company Number: JP-PFIZER INC-2017152009

PATIENT
  Age: 59 Year
  Sex: Female

DRUGS (4)
  1. TYGACIL [Suspect]
     Active Substance: TIGECYCLINE
     Indication: MEDIASTINITIS
  2. COLISTIN [Concomitant]
     Active Substance: COLISTIN
     Indication: POST PROCEDURAL SEPSIS
     Dosage: UNK
     Route: 041
     Dates: start: 20170329, end: 20170402
  3. COLISTIN [Concomitant]
     Active Substance: COLISTIN
     Indication: MEDIASTINITIS
  4. TYGACIL [Suspect]
     Active Substance: TIGECYCLINE
     Indication: POST PROCEDURAL SEPSIS
     Dosage: 100 MG, DAILY
     Route: 041
     Dates: start: 20170329, end: 20170402

REACTIONS (2)
  - Bacteraemia [Fatal]
  - Mediastinitis [Fatal]

NARRATIVE: CASE EVENT DATE: 20170402
